FAERS Safety Report 9827408 (Version 1)
Quarter: 2013Q4

REPORT INFORMATION
  Report Type: Spontaneous
  Country: US (occurrence: None)
  Receive Date: 20131120
  Receipt Date: 20131120
  Transmission Date: 20140711
  Serious: Yes (Other)
  Sender: FDA-Public Use
  Company Number: 1000049928

PATIENT
  Age: 78 Year
  Sex: Female
  Weight: 49 kg

DRUGS (6)
  1. VIIBRYD [Suspect]
     Indication: DEPRESSION
     Dosage: 11 TABLETS IN ONE DAY TABLET
     Dates: start: 20131008
  2. ALCOHOL [Suspect]
  3. ADVAIR(SERETIDE)(SERETIDE) [Concomitant]
  4. BENTYL(DICYCLOVERINE HYDROCHLORIDE)(DICYCLOVERINE HYDROCHLORIDE) [Concomitant]
  5. ALBUTEROL SULFATE (SALBUTAMOL SULFATE)(SALBUTAMOL SULFATE) [Concomitant]
  6. LISINOPRIL(LISINOPRIL)(LISINOPRIL) [Concomitant]

REACTIONS (3)
  - Overdose [None]
  - Lethargy [None]
  - Vomiting [None]
